FAERS Safety Report 16376064 (Version 2)
Quarter: 2019Q2

REPORT INFORMATION
  Report Type: Spontaneous
  Country: GB (occurrence: GB)
  Receive Date: 20190531
  Receipt Date: 20190606
  Transmission Date: 20190711
  Serious: Yes (Other)
  Sender: FDA-Public Use
  Company Number: GB-BAUSCH-BL-2019-015561

PATIENT
  Age: 71 Year
  Sex: Male

DRUGS (2)
  1. FLUCYTOSINE. [Suspect]
     Active Substance: FLUCYTOSINE
     Indication: CANDIDA INFECTION
     Route: 065
  2. AMPHOTERICIN B, LIPOSOME [Concomitant]
     Active Substance: AMPHOTERICIN B
     Indication: CANDIDA INFECTION
     Route: 065

REACTIONS (1)
  - Drug resistance [Unknown]
